FAERS Safety Report 12744512 (Version 1)
Quarter: 2016Q3

REPORT INFORMATION
  Report Type: Spontaneous
  Country: US (occurrence: US)
  Receive Date: 20160914
  Receipt Date: 20160914
  Transmission Date: 20161109
  Serious: No
  Sender: FDA-Public Use
  Company Number: US-JAZZ-2016-US-009383

PATIENT
  Sex: Female

DRUGS (16)
  1. MELOXICAM. [Concomitant]
     Active Substance: MELOXICAM
  2. XYREM [Suspect]
     Active Substance: SODIUM OXYBATE
     Dosage: 2.25 G, BID
     Route: 048
     Dates: start: 201405, end: 2015
  3. HORMONES [Concomitant]
     Active Substance: UNSPECIFIED INGREDIENT
  4. XYREM [Suspect]
     Active Substance: SODIUM OXYBATE
     Dosage: 2.25 G, BID
     Route: 048
     Dates: start: 201601
  5. HYDROCODONE/ACETAMINOPHEN [Concomitant]
     Active Substance: ACETAMINOPHEN\HYDROCODONE
  6. POTASSIUM CL ER [Concomitant]
     Active Substance: POTASSIUM CHLORIDE
  7. LIPITOR [Concomitant]
     Active Substance: ATORVASTATIN CALCIUM
  8. PROAIR HFA [Concomitant]
     Active Substance: ALBUTEROL SULFATE
  9. PROVIGIL [Concomitant]
     Active Substance: MODAFINIL
  10. BROVANA [Concomitant]
     Active Substance: ARFORMOTEROL TARTRATE
  11. BUDESONIDE. [Concomitant]
     Active Substance: BUDESONIDE
  12. LASIX [Concomitant]
     Active Substance: FUROSEMIDE
  13. XYREM [Suspect]
     Active Substance: SODIUM OXYBATE
     Indication: NARCOLEPSY
     Dosage: 2.25 G, BID
     Route: 048
     Dates: start: 201310, end: 2013
  14. XYREM [Suspect]
     Active Substance: SODIUM OXYBATE
     Dosage: 3 G, BID
     Route: 048
     Dates: start: 201503
  15. LYRICA [Concomitant]
     Active Substance: PREGABALIN
  16. CYMBALTA [Concomitant]
     Active Substance: DULOXETINE HYDROCHLORIDE

REACTIONS (3)
  - Pre-existing condition improved [Unknown]
  - Syncope [Recovered/Resolved]
  - Therapeutic response unexpected [Unknown]
